FAERS Safety Report 18777175 (Version 3)
Quarter: 2021Q1

REPORT INFORMATION
  Report Type: Spontaneous
  Country: US (occurrence: US)
  Receive Date: 20210122
  Receipt Date: 20210218
  Transmission Date: 20210419
  Serious: Yes (Hospitalization, Other)
  Sender: FDA-Public Use
  Company Number: US-ALLERGAN-2103119US

PATIENT
  Sex: Female

DRUGS (2)
  1. REFRESH OPTIVE [Suspect]
     Active Substance: CARBOXYMETHYLCELLULOSE SODIUM\GLYCERIN
     Indication: PRODUCT USED FOR UNKNOWN INDICATION
     Dosage: 2 GTT, PRN
     Route: 047
  2. REFRESH OPTIVE [Suspect]
     Active Substance: CARBOXYMETHYLCELLULOSE SODIUM\GLYCERIN
     Dosage: 2 GTT, PRN
     Route: 047
     Dates: end: 2020

REACTIONS (10)
  - Cholangitis infective [Unknown]
  - Eye irritation [Unknown]
  - Expired product administered [Unknown]
  - Product complaint [Unknown]
  - Fatigue [Unknown]
  - Sepsis [Unknown]
  - Biliary obstruction [Unknown]
  - Gait inability [Unknown]
  - Product use complaint [Unknown]
  - Product delivery mechanism issue [Unknown]
